FAERS Safety Report 9774751 (Version 1)
Quarter: 2013Q4

REPORT INFORMATION
  Report Type: Spontaneous
  Country: US (occurrence: US)
  Receive Date: 20131220
  Receipt Date: 20131220
  Transmission Date: 20140711
  Serious: No
  Sender: FDA-Public Use
  Company Number: US-PFIZER INC-2013364276

PATIENT
  Sex: Female

DRUGS (2)
  1. EFFEXOR XR [Suspect]
     Indication: MAJOR DEPRESSION
     Dosage: UNK
  2. EFFEXOR XR [Suspect]
     Dosage: UNK, 1X/DAY

REACTIONS (2)
  - Withdrawal syndrome [Unknown]
  - Paraesthesia [Unknown]
